FAERS Safety Report 15058079 (Version 3)
Quarter: 2018Q4

REPORT INFORMATION
  Report Type: Spontaneous
  Country: US (occurrence: US)
  Receive Date: 20180625
  Receipt Date: 20181016
  Transmission Date: 20190204
  Serious: No
  Sender: FDA-Public Use
  Company Number: US-PFIZER INC-2018255182

PATIENT
  Age: 80 Year
  Sex: Female

DRUGS (18)
  1. SERTRALINE HCL [Suspect]
     Active Substance: SERTRALINE HYDROCHLORIDE
     Dosage: UNK
  2. INSPRA [Suspect]
     Active Substance: EPLERENONE
     Dosage: UNK
  3. ASPIRIN. [Suspect]
     Active Substance: ASPIRIN
     Dosage: UNK
  4. SYMBICORT [Concomitant]
     Active Substance: BUDESONIDE\FORMOTEROL FUMARATE DIHYDRATE
     Dosage: UNK, 2X/DAY (BUDESONIDE-160MCG, FORMOTEROL FUMARATE-4.5MCG)
     Route: 055
     Dates: start: 20180101
  5. TYLENOL [Concomitant]
     Active Substance: ACETAMINOPHEN
     Dosage: 325 MG, AS NEEDED
     Dates: start: 20180618
  6. PROMETHAZINE [Concomitant]
     Active Substance: PROMETHAZINE\PROMETHAZINE HYDROCHLORIDE
     Indication: NAUSEA
     Dosage: 12.5 MG, AS NEEDED (1 P.O.Q. 6-8 HOURS PRN)
     Route: 048
     Dates: start: 20180129
  7. HYDROCHLOROTHIAZIDE. [Suspect]
     Active Substance: HYDROCHLOROTHIAZIDE
     Dosage: UNK
  8. MELATONIN [Concomitant]
     Active Substance: MELATONIN
     Dosage: 10 MG, DAILY
     Route: 048
     Dates: start: 20180618
  9. ONDANSETRON [Concomitant]
     Active Substance: ONDANSETRON
     Dosage: 8 MG, AS NEEDED
     Dates: start: 20171218
  10. TRAMADOL. [Concomitant]
     Active Substance: TRAMADOL
     Dosage: 50 MG, 2X/DAY
     Dates: start: 20180129
  11. PROMETHAZINE [Concomitant]
     Active Substance: PROMETHAZINE\PROMETHAZINE HYDROCHLORIDE
     Dosage: 25 MG, AS NEEDED (ONE EVERY 4-5 HOURS PRN)
     Dates: start: 20180618
  12. IRBESARTAN. [Suspect]
     Active Substance: IRBESARTAN
     Dosage: 12.5 MG, UNK
  13. ZOFRAN [Concomitant]
     Active Substance: ONDANSETRON HYDROCHLORIDE
     Indication: NAUSEA
     Dosage: 4 MG, AS NEEDED (ONE Q 8 HOURS PRN )
     Dates: start: 20180618
  14. LEVOFLOXACIN. [Suspect]
     Active Substance: LEVOFLOXACIN
     Dosage: UNK
  15. ACTOS [Suspect]
     Active Substance: PIOGLITAZONE HYDROCHLORIDE
     Dosage: UNK
  16. AVELOX [Suspect]
     Active Substance: MOXIFLOXACIN HYDROCHLORIDE
     Dosage: UNK
  17. IRBESARTAN. [Suspect]
     Active Substance: IRBESARTAN
     Dosage: 600 MG, DAILY
     Route: 048
     Dates: start: 20171218
  18. HYDROXYUREA. [Concomitant]
     Active Substance: HYDROXYUREA
     Dosage: 500 MG, DAILY
     Route: 048
     Dates: start: 20180328

REACTIONS (1)
  - Drug hypersensitivity [Unknown]
